APPROVED DRUG PRODUCT: OPCON-A
Active Ingredient: NAPHAZOLINE HYDROCHLORIDE; PHENIRAMINE MALEATE
Strength: 0.02675%;0.315%
Dosage Form/Route: SOLUTION/DROPS;OPHTHALMIC
Application: N020065 | Product #001
Applicant: BAUSCH AND LOMB INC
Approved: Jun 8, 1994 | RLD: Yes | RS: Yes | Type: OTC